FAERS Safety Report 23268609 (Version 3)
Quarter: 2024Q1

REPORT INFORMATION
  Report Type: Spontaneous
  Country: US (occurrence: US)
  Receive Date: 20231206
  Receipt Date: 20240125
  Transmission Date: 20240409
  Serious: No
  Sender: FDA-Public Use
  Company Number: US-PFIZER INC-PV202300194045

PATIENT
  Age: 60 Year
  Sex: Female
  Weight: 104.8 kg

DRUGS (1)
  1. PAXLOVID [Suspect]
     Active Substance: NIRMATRELVIR\RITONAVIR
     Indication: COVID-19 treatment
     Dosage: 1 DF
     Dates: start: 20231125

REACTIONS (9)
  - Nasal congestion [Recovered/Resolved]
  - Ear discomfort [Recovered/Resolved]
  - Lymphadenopathy [Recovered/Resolved]
  - Dyspnoea [Unknown]
  - Oropharyngeal pain [Unknown]
  - Condition aggravated [Unknown]
  - Discomfort [Unknown]
  - Headache [Unknown]
  - Hypersensitivity [Unknown]

NARRATIVE: CASE EVENT DATE: 20231125
